FAERS Safety Report 4462442-8 (Version None)
Quarter: 2004Q3

REPORT INFORMATION
  Report Type: 
  Country: None (occurrence: None)
  Receive Date: 20040928
  Receipt Date: 20040913
  Transmission Date: 20050211
  Serious: Yes (Hospitalization)
  Sender: FDA-Public Use
  Company Number: CIP04001997

PATIENT
  Age: 81 Year
  Sex: Female

DRUGS (5)
  1. ACTONEL [Suspect]
     Indication: LUMBAR VERTEBRAL FRACTURE
     Dosage: 2.5 MG, DAILY, ORAL
     Route: 048
     Dates: start: 20040723, end: 20040822
  2. CONIEL (BENIDIPINE HYDROCHLORIDE) [Concomitant]
  3. URSO [Concomitant]
  4. METOCLOPRAMIDE [Concomitant]
  5. LIVACT (AMINO ACIDS) [Concomitant]

REACTIONS (15)
  - ARTERIOVENOUS MALFORMATION [None]
  - BLOOD ALBUMIN DECREASED [None]
  - C-REACTIVE PROTEIN INCREASED [None]
  - CONDITION AGGRAVATED [None]
  - DIARRHOEA [None]
  - DIVERTICULAR HERNIA [None]
  - GASTROINTESTINAL DISORDER [None]
  - HAEMATOCHEZIA [None]
  - HAEMATOCRIT DECREASED [None]
  - HAEMOGLOBIN DECREASED [None]
  - MELAENA [None]
  - MONOCYTE COUNT INCREASED [None]
  - PLATELET COUNT DECREASED [None]
  - PROTEIN TOTAL DECREASED [None]
  - RED BLOOD CELL COUNT DECREASED [None]
